FAERS Safety Report 23555058 (Version 1)
Quarter: 2024Q1

REPORT INFORMATION
  Report Type: Spontaneous
  Country: FR (occurrence: FR)
  Receive Date: 20240222
  Receipt Date: 20240222
  Transmission Date: 20240410
  Serious: Yes (Hospitalization)
  Sender: FDA-Public Use
  Company Number: None

PATIENT
  Age: 19 Year
  Sex: Male
  Weight: 50 kg

DRUGS (4)
  1. FLUOXETINE HYDROCHLORIDE [Suspect]
     Active Substance: FLUOXETINE HYDROCHLORIDE
     Indication: Mental disorder
     Dosage: 60 MG, DAILY
     Route: 065
     Dates: start: 20240124, end: 20240124
  2. LITHIUM [Suspect]
     Active Substance: LITHIUM
     Indication: Mental disorder
     Dosage: 1200 MG, UNKNOWN
     Route: 065
     Dates: start: 20240124, end: 20240124
  3. LOXAPINE SUCCINATE [Suspect]
     Active Substance: LOXAPINE SUCCINATE
     Indication: Mental disorder
     Dosage: 150 MG, UNKNOWN
     Route: 065
     Dates: start: 20240124, end: 20240124
  4. QUETIAPINE [Suspect]
     Active Substance: QUETIAPINE
     Indication: Mental disorder
     Dosage: 900 MG, UNKNOWN
     Route: 065
     Dates: start: 20240124, end: 20240124

REACTIONS (6)
  - Acute kidney injury [Not Recovered/Not Resolved]
  - Rhabdomyolysis [Not Recovered/Not Resolved]
  - Altered state of consciousness [Not Recovered/Not Resolved]
  - Generalised tonic-clonic seizure [Not Recovered/Not Resolved]
  - Intentional overdose [Not Recovered/Not Resolved]
  - Suicide attempt [Not Recovered/Not Resolved]

NARRATIVE: CASE EVENT DATE: 20240125
